FAERS Safety Report 7493115-5 (Version None)
Quarter: 2011Q2

REPORT INFORMATION
  Report Type: 
  Country: None (occurrence: None)
  Receive Date: 20110519
  Receipt Date: 20110519
  Transmission Date: 20111010
  Serious: Yes (Hospitalization)
  Sender: FDA-Public Use
  Company Number: None

PATIENT
  Age: 73 Year
  Sex: Female
  Weight: 41.88 kg

DRUGS (7)
  1. ASPIRIN [Concomitant]
  2. SPIRONOLACTONE [Concomitant]
  3. TREANDA [Suspect]
     Indication: SMALL CELL LUNG CANCER STAGE UNSPECIFIED
     Dosage: 120 MG/M2 IV Q 21 DAYS
     Route: 042
     Dates: start: 20110426, end: 20110427
  4. ALLOPURINOL [Concomitant]
  5. CARVEDILOL [Concomitant]
  6. MICROK CAPS [Concomitant]
  7. FUROSEMIDE [Concomitant]

REACTIONS (7)
  - PAIN [None]
  - PYREXIA [None]
  - ASTHENIA [None]
  - NAUSEA [None]
  - PNEUMONIA [None]
  - CARDIOMEGALY [None]
  - VOMITING [None]
